FAERS Safety Report 12047437 (Version 2)
Quarter: 2016Q2

REPORT INFORMATION
  Report Type: Spontaneous
  Country: US (occurrence: US)
  Receive Date: 20160208
  Receipt Date: 20160401
  Transmission Date: 20160815
  Serious: No
  Sender: FDA-Public Use
  Company Number: US-PFIZER INC-2016057463

PATIENT
  Age: 56 Year
  Sex: Male
  Weight: 108.86 kg

DRUGS (1)
  1. XALATAN [Suspect]
     Active Substance: LATANOPROST
     Indication: INTRAOCULAR PRESSURE INCREASED
     Dosage: 1 GTT, 1X/DAY (1 DROP IN THE LEFT EYE ONCE A DAY IN THE EVENING)
     Dates: start: 20160106

REACTIONS (2)
  - Incorrect dose administered [Not Recovered/Not Resolved]
  - Product dropper issue [Not Recovered/Not Resolved]

NARRATIVE: CASE EVENT DATE: 20160106
